FAERS Safety Report 4375976-1 (Version None)
Quarter: 2004Q2

REPORT INFORMATION
  Report Type: 
  Country: None (occurrence: None)
  Receive Date: 20040607
  Receipt Date: 20040526
  Transmission Date: 20050107
  Serious: Yes (Life-Threatening)
  Sender: FDA-Public Use
  Company Number: 2002-BP-05081BP

PATIENT
  Age: 57 Year
  Sex: Male

DRUGS (6)
  1. MICARDIS [Suspect]
     Indication: PROPHYLAXIS
     Dosage: PO
     Route: 048
     Dates: start: 20020101, end: 20020101
  2. RAMIPRIL [Suspect]
     Indication: PROPHYLAXIS
     Dosage: PO
     Route: 048
     Dates: start: 20020101
  3. CLOPIDOGREL BISULFATE [Concomitant]
  4. DILTIAZEM (DILTIAZEM) (NR) [Concomitant]
  5. SIMVASTATIN (SIMVASTATIN) (NR) [Concomitant]
  6. LANSOPRAZOLE [Concomitant]

REACTIONS (2)
  - BLOOD PRESSURE SYSTOLIC DECREASED [None]
  - SYNCOPE [None]
